FAERS Safety Report 7547766-X (Version None)
Quarter: 2011Q2

REPORT INFORMATION
  Report Type: 
  Country: None (occurrence: None)
  Receive Date: 20110614
  Receipt Date: 20110601
  Transmission Date: 20111010
  Serious: Yes (Other)
  Sender: FDA-Public Use
  Company Number: DE-MYLANLABS-2011S1011501

PATIENT
  Age: 82 Year
  Sex: Female

DRUGS (2)
  1. FLUANXOL /00109703/ [Suspect]
     Indication: PRODUCT USED FOR UNKNOWN INDICATION
     Route: 048
  2. CITALOPRAM HYDROBROMIDE [Suspect]
     Indication: PRODUCT USED FOR UNKNOWN INDICATION
     Route: 048
     Dates: start: 20110515, end: 20110530

REACTIONS (3)
  - GASTROINTESTINAL HYPOMOTILITY [None]
  - HYPOACUSIS [None]
  - VISUAL ACUITY REDUCED [None]
